FAERS Safety Report 4446687-9 (Version None)
Quarter: 2004Q3

REPORT INFORMATION
  Report Type: 
  Country: None (occurrence: None)
  Receive Date: 20040908
  Receipt Date: 20040826
  Transmission Date: 20050211
  Serious: No
  Sender: FDA-Public Use
  Company Number: 04H-163-0271755-00

PATIENT

DRUGS (1)
  1. DOBUTAMINE HCL [Suspect]
     Indication: STRESS ECHOCARDIOGRAM
     Dosage: CONTINUOUS, INTRAVENOUS
     Route: 042

REACTIONS (1)
  - ATRIAL FIBRILLATION [None]
